FAERS Safety Report 8053439-X (Version None)
Quarter: 2012Q1

REPORT INFORMATION
  Report Type: 
  Country: None (occurrence: None)
  Receive Date: 20120118
  Receipt Date: 20100602
  Transmission Date: 20120608
  Serious: Yes (Hospitalization)
  Sender: FDA-Public Use
  Company Number: AU-GLAXOSMITHKLINE-B0606703A

PATIENT
  Sex: Female
  Weight: 71 kg

DRUGS (10)
  1. LACTULOSE [Concomitant]
     Indication: CONSTIPATION
     Dates: start: 20091030
  2. VENLAFAXINE HCL [Concomitant]
     Indication: HYPERHIDROSIS
     Dates: start: 20060101
  3. ONDANSETRON [Concomitant]
     Indication: NAUSEA
     Dates: start: 20091104
  4. MORPHINE HYDROCHLORIDE [Concomitant]
     Indication: PAIN
     Dates: start: 20091022
  5. ESOMEPRAZOLE SODIUM [Concomitant]
     Indication: DYSPEPSIA
     Dates: start: 20091030
  6. GASTROLYTE [Concomitant]
     Indication: DYSPEPSIA
     Dates: start: 20091030
  7. LAPATINIB [Suspect]
     Indication: BREAST CANCER METASTATIC
     Dosage: 1250MG PER DAY
     Route: 048
     Dates: start: 20091106
  8. MORPHINE SULFATE [Concomitant]
     Indication: PAIN
     Dates: start: 20091022
  9. PACLITAXEL [Suspect]
     Indication: BREAST CANCER METASTATIC
     Dosage: 110MG WEEKLY
     Route: 042
     Dates: start: 20091105
  10. NAPROSYN [Concomitant]
     Indication: PAIN
     Dates: start: 20091030

REACTIONS (4)
  - CONDITION AGGRAVATED [None]
  - MUCOSAL INFLAMMATION [None]
  - NEUTROPENIA [None]
  - VOMITING [None]
